FAERS Safety Report 9468133 (Version 1)
Quarter: 2013Q3

REPORT INFORMATION
  Report Type: Spontaneous
  Country: NO (occurrence: NO)
  Receive Date: 20130821
  Receipt Date: 20130821
  Transmission Date: 20140515
  Serious: Yes (Other)
  Sender: FDA-Public Use
  Company Number: NO-PFIZER INC-2013239559

PATIENT
  Age: 6 Decade
  Sex: Male

DRUGS (2)
  1. ZOLOFT [Suspect]
     Indication: DEPRESSION
     Dosage: 50 MG, UNK
  2. ZOLOFT [Interacting]
     Dosage: 200 MG, UNK
     Dates: start: 2013

REACTIONS (2)
  - Acute psychosis [Unknown]
  - Alcohol interaction [Unknown]
